FAERS Safety Report 15783573 (Version 1)
Quarter: 2019Q1

REPORT INFORMATION
  Report Type: Report from Study
  Country: ES (occurrence: ES)
  Receive Date: 20190102
  Receipt Date: 20190102
  Transmission Date: 20190417
  Serious: Yes (Hospitalization)
  Sender: FDA-Public Use
  Company Number: ES-MYLANLABS-2018M1097129

PATIENT
  Age: 61 Year
  Sex: Male

DRUGS (2)
  1. CLOPIDOGREL [Suspect]
     Active Substance: CLOPIDOGREL BISULFATE
     Indication: PROPHYLAXIS
     Dosage: 75 MILLIGRAM, QD,(|| DOSIS UNIDAD FRECUENCIA: 75 MG-MILIGRAMOS || UNIDAD DE FRECUENCIA: 1 D?A)
     Route: 048
     Dates: start: 20150606, end: 20160217
  2. ADIRO [Interacting]
     Active Substance: ASPIRIN
     Indication: PROPHYLAXIS
     Dosage: 100 MILLIGRAM, QD,(COMPRIMIDOS GASTRORRESISTENTES EFG , 30 COMPRIMIDOS)
     Route: 048
     Dates: start: 20150414

REACTIONS (2)
  - Upper gastrointestinal haemorrhage [Recovered/Resolved]
  - Labelled drug-drug interaction medication error [Unknown]

NARRATIVE: CASE EVENT DATE: 20160212
